FAERS Safety Report 14345652 (Version 3)
Quarter: 2018Q1

REPORT INFORMATION
  Report Type: Other
  Country: GB (occurrence: GB)
  Receive Date: 20180103
  Receipt Date: 20180329
  Transmission Date: 20180509
  Serious: Yes (Hospitalization, Other)
  Sender: FDA-Public Use
  Company Number: GB-MACLEODS PHARMACEUTICALS US LTD-MAC2017007766

PATIENT

DRUGS (5)
  1. ASPIRIN. [Concomitant]
     Active Substance: ASPIRIN
     Indication: CORONARY ARTERIAL STENT INSERTION
     Dosage: UNK
     Route: 065
  2. GENERAL ANAESTHETIC [Suspect]
     Active Substance: UNSPECIFIED INGREDIENT
     Indication: LIMB OPERATION
     Dosage: UNK
     Route: 065
     Dates: start: 20170405, end: 20170405
  3. CLOPIDOGREL [Suspect]
     Active Substance: CLOPIDOGREL BISULFATE
     Indication: CORONARY ARTERIAL STENT INSERTION
     Dosage: 75 MG, UNK
     Route: 048
     Dates: start: 20170407
  4. CASSIA [Concomitant]
     Indication: PRODUCT USED FOR UNKNOWN INDICATION
     Dosage: UNK
     Route: 065
  5. ISOSORBIDE MONONITRATE. [Suspect]
     Active Substance: ISOSORBIDE MONONITRATE
     Indication: PRODUCT USED FOR UNKNOWN INDICATION
     Dosage: UNK
     Route: 065
     Dates: start: 20170407

REACTIONS (8)
  - Atrial fibrillation [Recovered/Resolved]
  - Procedural haemorrhage [Unknown]
  - Drug prescribing error [Unknown]
  - Diarrhoea [Unknown]
  - Post procedural haemorrhage [Unknown]
  - Clostridium difficile infection [Unknown]
  - Hypotension [Recovered/Resolved]
  - Drug administration error [Unknown]

NARRATIVE: CASE EVENT DATE: 20170405
